FAERS Safety Report 23089125 (Version 2)
Quarter: 2023Q4

REPORT INFORMATION
  Report Type: Spontaneous
  Country: ES (occurrence: ES)
  Receive Date: 20231020
  Receipt Date: 20231024
  Transmission Date: 20240109
  Serious: Yes (Other)
  Sender: FDA-Public Use
  Company Number: ES-SANDOZ-SDZ2023ES032767

PATIENT
  Age: 59 Year
  Sex: Female

DRUGS (23)
  1. LETROZOLE [Suspect]
     Active Substance: LETROZOLE
     Indication: Malignant peritoneal neoplasm
     Dosage: UNK
     Route: 065
     Dates: start: 202103
  2. LETROZOLE [Suspect]
     Active Substance: LETROZOLE
     Indication: Ovarian cancer
  3. TOPOTECAN [Suspect]
     Active Substance: TOPOTECAN HYDROCHLORIDE
     Indication: Malignant peritoneal neoplasm
     Dosage: UNK
     Route: 065
  4. TOPOTECAN [Suspect]
     Active Substance: TOPOTECAN HYDROCHLORIDE
     Indication: Ovarian cancer
  5. GEMCITABINE [Suspect]
     Active Substance: GEMCITABINE
     Indication: Malignant peritoneal neoplasm
     Dosage: TWO CYCLES
     Route: 065
  6. GEMCITABINE [Suspect]
     Active Substance: GEMCITABINE
     Indication: Ovarian cancer
  7. BEVACIZUMAB [Suspect]
     Active Substance: BEVACIZUMAB
     Indication: Malignant peritoneal neoplasm
     Dosage: 10 MG/M2 (INITIALLY FORTNIGHTLY AND THEN Q21D)
     Route: 065
  8. BEVACIZUMAB [Suspect]
     Active Substance: BEVACIZUMAB
     Indication: Ovarian cancer
     Dosage: 10 MILLIGRAM/KILOGRAM (41 CYCLES)
     Route: 065
     Dates: start: 20140826, end: 20181113
  9. CARBOPLATIN [Suspect]
     Active Substance: CARBOPLATIN
     Indication: Malignant peritoneal neoplasm
     Dosage: SIX CYCLES
     Route: 065
     Dates: start: 200802, end: 200806
  10. CARBOPLATIN [Suspect]
     Active Substance: CARBOPLATIN
     Indication: Ovarian cancer
     Dosage: UNK
     Route: 065
     Dates: start: 20090324, end: 20090718
  11. CARBOPLATIN [Suspect]
     Active Substance: CARBOPLATIN
     Dosage: SIX CYCLES
     Route: 065
     Dates: start: 201312, end: 201405
  12. CARBOPLATIN [Suspect]
     Active Substance: CARBOPLATIN
     Dosage: UNK
     Route: 065
     Dates: start: 20181204, end: 20190305
  13. CARBOPLATIN [Suspect]
     Active Substance: CARBOPLATIN
     Dosage: UNK
     Route: 065
     Dates: start: 202109
  14. DOXORUBICIN [Suspect]
     Active Substance: DOXORUBICIN
     Indication: Malignant peritoneal neoplasm
     Dosage: 30 MILLIGRAM/SQ. METER (SIX CYCLES)
     Route: 065
     Dates: start: 201312, end: 201405
  15. DOXORUBICIN [Suspect]
     Active Substance: DOXORUBICIN
     Indication: Ovarian cancer
     Dosage: 10 CYCLES
     Route: 065
     Dates: start: 20191017, end: 202008
  16. PACLITAXEL [Suspect]
     Active Substance: PACLITAXEL
     Indication: Malignant peritoneal neoplasm
     Dosage: 80MG/M2(GIVEN INITIALLY FORTNIGHTLY AND THEN Q21D)
     Route: 065
  17. PACLITAXEL [Suspect]
     Active Substance: PACLITAXEL
     Indication: Ovarian cancer
     Dosage: 175 MILLIGRAM/SQ. METER
     Route: 065
     Dates: start: 200802, end: 200806
  18. PACLITAXEL [Suspect]
     Active Substance: PACLITAXEL
     Dosage: UNK
     Route: 065
     Dates: start: 20090324, end: 20090718
  19. PACLITAXEL [Suspect]
     Active Substance: PACLITAXEL
     Dosage: 80 MG/M2, Q28D (41 CYCLES ON DAYS 1, 8, AND 15)
     Route: 065
     Dates: start: 20140826, end: 20181113
  20. IFOSFAMIDE [Suspect]
     Active Substance: IFOSFAMIDE
     Indication: Malignant peritoneal neoplasm
     Dosage: THREE CYCLES
     Route: 065
  21. IFOSFAMIDE [Suspect]
     Active Substance: IFOSFAMIDE
     Indication: Ovarian cancer
  22. TRABECTEDIN [Suspect]
     Active Substance: TRABECTEDIN
     Indication: Malignant peritoneal neoplasm
     Dosage: 1.1 MILLIGRAM/SQ. METER (10 CYCLES)
     Route: 065
     Dates: start: 20191017, end: 202008
  23. TRABECTEDIN [Suspect]
     Active Substance: TRABECTEDIN
     Indication: Ovarian cancer

REACTIONS (9)
  - Thrombocytopenia [Unknown]
  - Drug ineffective [Unknown]
  - Adrenal disorder [Unknown]
  - Lymphadenopathy [Unknown]
  - Drug intolerance [Unknown]
  - Dermatitis [Unknown]
  - Onycholysis [Unknown]
  - Mucosal inflammation [Unknown]
  - Hypersensitivity [Unknown]
